FAERS Safety Report 15598605 (Version 2)
Quarter: 2024Q4

REPORT INFORMATION
  Report Type: Report from Study
  Country: US (occurrence: US)
  Receive Date: 20181108
  Receipt Date: 20241128
  Transmission Date: 20250114
  Serious: No
  Sender: ALEXION PHARMACEUTICALS
  Company Number: US-ALEXION PHARMACEUTICALS INC.-A201814565

PATIENT

DRUGS (4)
  1. STRENSIQ [Suspect]
     Active Substance: ASFOTASE ALFA
     Indication: Hypophosphatasia
     Dosage: UNK, SIX TIMES/WEEK
  2. STRENSIQ [Suspect]
     Active Substance: ASFOTASE ALFA
     Dosage: UNK, SIX TIMES/WEEK
  3. STRENSIQ [Suspect]
     Active Substance: ASFOTASE ALFA
     Dosage: UNK, SIX TIMES/WEEK
  4. STRENSIQ [Suspect]
     Active Substance: ASFOTASE ALFA
     Dosage: UNK, SIX TIMES/WEEK

REACTIONS (5)
  - Injection site reaction [Unknown]
  - Injection site atrophy [Not Recovered/Not Resolved]
  - Injection site discolouration [Unknown]
  - Injection site induration [Unknown]
  - Injection site mass [Unknown]
